FAERS Safety Report 7615714-X (Version None)
Quarter: 2011Q3

REPORT INFORMATION
  Report Type: 
  Country: None (occurrence: None)
  Receive Date: 20110711
  Receipt Date: 20110628
  Transmission Date: 20111222
  Serious: Yes (Other)
  Sender: FDA-Public Use
  Company Number: 2011MA008372

PATIENT
  Age: 33 Year
  Sex: Female

DRUGS (2)
  1. MIRTAZAPINE [Concomitant]
  2. VENLAFAXINE HYDROCHLORIDE [Suspect]
     Dosage: 75 MG;PO
     Route: 048
     Dates: start: 20110406

REACTIONS (1)
  - PHOTOSENSITIVITY REACTION [None]
